FAERS Safety Report 7797486-1 (Version None)
Quarter: 2011Q4

REPORT INFORMATION
  Report Type: 
  Country: None (occurrence: None)
  Receive Date: 20111004
  Receipt Date: 20111004
  Transmission Date: 20120403
  Serious: Yes (Hospitalization)
  Sender: FDA-Public Use
  Company Number: None

PATIENT
  Sex: Male
  Weight: 67 kg

DRUGS (4)
  1. VINCRISTINE SULFATE [Suspect]
     Dosage: 2 MG
  2. MERCAPTOPURINE [Suspect]
     Dosage: 150 MG
  3. DEXAMETHASONE [Suspect]
     Dosage: 12 MG
  4. METHOTREXATE [Suspect]
     Dosage: 35 MG

REACTIONS (1)
  - FEBRILE NEUTROPENIA [None]
